FAERS Safety Report 14205687 (Version 3)
Quarter: 2023Q4

REPORT INFORMATION
  Report Type: Spontaneous
  Country: US (occurrence: US)
  Receive Date: 20171120
  Receipt Date: 20231101
  Transmission Date: 20240110
  Serious: Yes (Other)
  Sender: FDA-Public Use
  Company Number: US-BIOMARINAP-US-2017-116137

PATIENT

DRUGS (1)
  1. ALDURAZYME [Suspect]
     Active Substance: LARONIDASE
     Indication: Mucopolysaccharidosis I
     Dosage: 29 (UNITS NOT PROVIDED), QW
     Route: 041
     Dates: start: 20060802

REACTIONS (5)
  - Cardiac arrest [Recovering/Resolving]
  - Eye movement disorder [Unknown]
  - Visual impairment [Unknown]
  - Cardiac disorder [Unknown]
  - Tachycardia [Not Recovered/Not Resolved]

NARRATIVE: CASE EVENT DATE: 20171010
